FAERS Safety Report 22809002 (Version 7)
Quarter: 2023Q4

REPORT INFORMATION
  Report Type: Spontaneous
  Country: US (occurrence: US)
  Receive Date: 20230810
  Receipt Date: 20231107
  Transmission Date: 20240109
  Serious: No
  Sender: FDA-Public Use
  Company Number: US-PFIZER INC-202300269484

PATIENT
  Age: 11 Year
  Sex: Male
  Weight: 38.56 kg

DRUGS (5)
  1. GENOTROPIN [Suspect]
     Active Substance: SOMATROPIN
     Indication: Growth hormone deficiency
     Dosage: 1.6 MG, ALTERNATE DAY (ALTERNATES BETWEEN 1.6MG AND 1.8MG EVERY OTHER DAY)
  2. GENOTROPIN [Suspect]
     Active Substance: SOMATROPIN
     Dosage: 1.8 MG, ALTERNATE DAY (ALTERNATES BETWEEN 1.6MG AND 1.8MG EVERY OTHER DAY)
  3. GENOTROPIN [Suspect]
     Active Substance: SOMATROPIN
     Dosage: 1.4 MG, ALTERNATE DAY [ALTERNATE 1.4 MG AND 1.6 MG EVERY OTHER DAY, 7 DAYS A WEEK]
  4. GENOTROPIN [Suspect]
     Active Substance: SOMATROPIN
     Dosage: 1.6 MG, ALTERNATE DAY [ALTERNATE 1.4 MG AND 1.6 MG EVERY OTHER DAY, 7 DAYS A WEEK]
  5. GENOTROPIN [Suspect]
     Active Substance: SOMATROPIN
     Dosage: 1.6 MG, ALTERNATING WITH 1.8MG

REACTIONS (6)
  - Product prescribing error [Unknown]
  - Drug dose omission by device [Unknown]
  - Device breakage [Unknown]
  - Device use error [Unknown]
  - Device delivery system issue [Unknown]
  - Device leakage [Unknown]
